FAERS Safety Report 4896840-5 (Version None)
Quarter: 2006Q1

REPORT INFORMATION
  Report Type: 
  Country: None (occurrence: None)
  Receive Date: 20060126
  Receipt Date: 20051214
  Transmission Date: 20060701
  Serious: Yes (Death, Life-Threatening, Hospitalization)
  Sender: FDA-Public Use
  Company Number: 001#1#2005-00340

PATIENT
  Age: 72 Year
  Sex: Male

DRUGS (4)
  1. PROSTAVASIN [Suspect]
     Indication: ISCHAEMIA
     Dosage: 60 MCG INTRAVENOUS (NOT OTHERWISE SPECIFIED)
     Route: 042
     Dates: start: 20051117, end: 20051118
  2. SODIUM CHLORIDE [Suspect]
     Indication: ISCHAEMIA
     Dosage: 250 ML INTRAVENOUS (NOT OTHERWISE SPECIFIED)
     Route: 042
     Dates: start: 20051117, end: 20051118
  3. SODIUM CHLORIDE [Suspect]
     Indication: ISCHAEMIA
     Dosage: 250 ML INTRAVENOUS (NOT OTHERWISE SPECIFIED)
     Route: 042
     Dates: start: 20051207, end: 20051208
  4. METOPROLOL (METOPROLOL) [Concomitant]

REACTIONS (13)
  - CARDIAC ARREST [None]
  - CHEST PAIN [None]
  - CONFUSIONAL STATE [None]
  - DEEP VEIN THROMBOSIS [None]
  - DISORIENTATION [None]
  - GANGRENE [None]
  - GASTROOESOPHAGEAL REFLUX DISEASE [None]
  - LOSS OF CONSCIOUSNESS [None]
  - NEURODEGENERATIVE DISORDER [None]
  - PNEUMONIA [None]
  - PULMONARY EMBOLISM [None]
  - VENTRICULAR FIBRILLATION [None]
  - VENTRICULAR FLUTTER [None]
